FAERS Safety Report 11472095 (Version 5)
Quarter: 2015Q4

REPORT INFORMATION
  Report Type: Spontaneous
  Country: US (occurrence: US)
  Receive Date: 20150908
  Receipt Date: 20151210
  Transmission Date: 20160304
  Serious: No
  Sender: FDA-Public Use
  Company Number: US-PFIZER INC-2015284107

PATIENT
  Age: 65 Year
  Sex: Female
  Weight: 59 kg

DRUGS (2)
  1. SUTENT [Suspect]
     Active Substance: SUNITINIB MALATE
     Dosage: 50 MG 2 WEEKS ON/1 WEEK OFF
     Dates: start: 20151014, end: 20151029
  2. SUTENT [Suspect]
     Active Substance: SUNITINIB MALATE
     Indication: NEOPLASM MALIGNANT
     Dosage: 50 MG, CYCLIC (28 DAYS ON/14 DAYS OFF)
     Route: 048
     Dates: start: 20150729, end: 20150901

REACTIONS (12)
  - Stomatitis [Unknown]
  - Candida infection [Unknown]
  - Neoplasm malignant [Unknown]
  - Asthenia [Unknown]
  - Disease progression [Unknown]
  - Hypertension [Unknown]
  - Dry mouth [Unknown]
  - Feeding disorder [Unknown]
  - Yellow skin [Unknown]
  - Feeling abnormal [Unknown]
  - Hypotension [Unknown]
  - Dizziness [Unknown]
